FAERS Safety Report 7942738-5 (Version None)
Quarter: 2011Q4

REPORT INFORMATION
  Report Type: 
  Country: None (occurrence: None)
  Receive Date: 20111128
  Receipt Date: 20111004
  Transmission Date: 20120403
  Serious: No
  Sender: FDA-Public Use
  Company Number: US-BAYER-2011-095583

PATIENT

DRUGS (3)
  1. ASPIRIN [Suspect]
     Indication: PAIN
     Route: 048
  2. MOTRIN [Concomitant]
     Indication: PAIN
  3. ALEVE (CAPLET) [Suspect]
     Indication: PAIN
     Dosage: 1 DF, UNK
     Route: 048

REACTIONS (1)
  - PAIN [None]
